FAERS Safety Report 20140221 (Version 2)
Quarter: 2021Q4

REPORT INFORMATION
  Report Type: Other
  Country: US (occurrence: None)
  Receive Date: 20211202
  Receipt Date: 20211206
  Transmission Date: 20220303
  Serious: No
  Sender: FDA-Public Use
  Company Number: US-ROCHE-2961282

PATIENT
  Age: 65 Year
  Sex: Female
  Weight: 72.640 kg

DRUGS (3)
  1. OCREVUS [Suspect]
     Active Substance: OCRELIZUMAB
     Indication: Relapsing-remitting multiple sclerosis
     Dosage: DOB: 18/APR/2018, 02/MAY/2018, 25/APR/2019, 25/OCT/2019, 24/APR/2020, 16/NOV/2020, 24/MAY/2021
     Route: 042
     Dates: start: 201704
  2. TYSABRI [Concomitant]
     Active Substance: NATALIZUMAB
  3. COPAXONE [Concomitant]
     Active Substance: GLATIRAMER ACETATE

REACTIONS (1)
  - JC polyomavirus test positive [Not Recovered/Not Resolved]

NARRATIVE: CASE EVENT DATE: 20211118
